FAERS Safety Report 21612656 (Version 3)
Quarter: 2023Q1

REPORT INFORMATION
  Report Type: Spontaneous
  Country: JP (occurrence: JP)
  Receive Date: 20221118
  Receipt Date: 20230129
  Transmission Date: 20230417
  Serious: Yes (Other)
  Sender: FDA-Public Use
  Company Number: JP-TAKEDA-2022TJP077261

PATIENT
  Age: 83 Year
  Sex: Male
  Weight: 58 kg

DRUGS (6)
  1. VECTIBIX [Suspect]
     Active Substance: PANITUMUMAB
     Indication: Colon cancer
     Dosage: 372 MILLIGRAM, Q3WK
     Route: 040
     Dates: start: 20220608
  2. VECTIBIX [Suspect]
     Active Substance: PANITUMUMAB
     Indication: Metastases to lymph nodes
     Dosage: UNK
     Route: 065
  3. VECTIBIX [Suspect]
     Active Substance: PANITUMUMAB
     Indication: Metastases to lung
     Dosage: UNK
     Route: 065
  4. XELODA [Suspect]
     Active Substance: CAPECITABINE
     Indication: Product used for unknown indication
     Dosage: 2400 MILLIGRAM, Q3WK
     Route: 048
     Dates: start: 20220608
  5. OXALIPLATIN [Suspect]
     Active Substance: OXALIPLATIN
     Indication: Product used for unknown indication
     Dosage: 150 MILLIGRAM, Q3WK
     Route: 040
     Dates: start: 20220608
  6. LINZESS [Concomitant]
     Active Substance: LINACLOTIDE
     Dosage: 0.5 MILLIGRAM
     Route: 048

REACTIONS (4)
  - Thrombocytopenia [Recovering/Resolving]
  - Trichomegaly [Not Recovered/Not Resolved]
  - Pruritus [Not Recovered/Not Resolved]
  - Hypomagnesaemia [Not Recovered/Not Resolved]

NARRATIVE: CASE EVENT DATE: 20221005
